FAERS Safety Report 20240286 (Version 1)
Quarter: 2021Q4

REPORT INFORMATION
  Report Type: Report from Study
  Country: NL (occurrence: NL)
  Receive Date: 20211228
  Receipt Date: 20211228
  Transmission Date: 20220303
  Serious: Yes (Other)
  Sender: FDA-Public Use
  Company Number: NL-MYLANLABS-2021M1096826

PATIENT
  Age: 1 Decade
  Sex: Female

DRUGS (5)
  1. ISOTRETINOIN [Suspect]
     Active Substance: ISOTRETINOIN
     Indication: Neuroblastoma
     Dosage: 160 MILLIGRAM/SQ. METER, QD ON  14 CONSECUTIVE DAYS
     Route: 065
  2. DINUTUXIMAB [Suspect]
     Active Substance: DINUTUXIMAB
     Indication: Neuroblastoma
     Dosage: AS 10 H (20 H MAXIMUM) INFUSION ON 4 CONSECUTIVE DAYS; CUMULATIVE DOSE: 70 MG/M2 PER CYCLE
     Route: 042
  3. SARGRAMOSTIM [Suspect]
     Active Substance: SARGRAMOSTIM
     Indication: Neuroblastoma
     Dosage: 14 CONSECUTIVE DAYS DURING COURSES 1, 3 AND 5
     Route: 058
  4. ALDESLEUKIN [Suspect]
     Active Substance: ALDESLEUKIN
     Indication: Neuroblastoma
     Dosage: 3.0 X 10E6 IU/M2/DAY ON 4 CONSECUTIVE DAYS IN WEEK 1 DURING COURSES 2 AND 4
     Route: 042
  5. ALDESLEUKIN [Suspect]
     Active Substance: ALDESLEUKIN
     Dosage: 4.5 X 10E6 IU/M2/DAY ON 4 CONSECUTIVE DAYS IN WEEK 2 DURING COURSES 2 AND 4
     Route: 042

REACTIONS (5)
  - Pyrexia [Unknown]
  - Device related infection [Unknown]
  - Pain [Unknown]
  - Hypersensitivity [Unknown]
  - Off label use [Unknown]
